FAERS Safety Report 6675162-6 (Version None)
Quarter: 2010Q2

REPORT INFORMATION
  Report Type: 
  Country: None (occurrence: None)
  Receive Date: 20100407
  Receipt Date: 20100325
  Transmission Date: 20101027
  Serious: Yes (Hospitalization)
  Sender: FDA-Public Use
  Company Number: 1000012971

PATIENT
  Age: 56 Year
  Sex: Female
  Weight: 59 kg

DRUGS (5)
  1. FOSFOMYCIN (FOSFOMYCIN TROMETAMOL) (GRANULATE) [Suspect]
     Indication: URINARY TRACT INFECTION
     Dosage: 3 GM (3 GM, 1 IN 1 D),ORAL
     Route: 048
     Dates: start: 20100302, end: 20100302
  2. OLMESARTAN MEDOXOMIL [Concomitant]
  3. ASPIRIN [Concomitant]
  4. CITALOPRAM HYDROBROMIDE [Concomitant]
  5. ESTRADIOL TRANSDERMAL (POULTICE OR PATCH) [Concomitant]

REACTIONS (2)
  - HYPOTENSION [None]
  - TYPE IV HYPERSENSITIVITY REACTION [None]
